FAERS Safety Report 6834607-9 (Version None)
Quarter: 2010Q3

REPORT INFORMATION
  Report Type: 
  Country: None (occurrence: None)
  Receive Date: 20100712
  Receipt Date: 20070416
  Transmission Date: 20110219
  Serious: No
  Sender: FDA-Public Use
  Company Number: US-PFIZER INC-2007030003

PATIENT
  Sex: Male
  Weight: 95.25 kg

DRUGS (1)
  1. CHANTIX [Suspect]
     Indication: SMOKING CESSATION THERAPY
     Route: 048
     Dates: start: 20070408, end: 20070408

REACTIONS (5)
  - CHEST PAIN [None]
  - HEADACHE [None]
  - NAUSEA [None]
  - SOMNOLENCE [None]
  - VISION BLURRED [None]
